FAERS Safety Report 14611882 (Version 3)
Quarter: 2018Q2

REPORT INFORMATION
  Report Type: Report from Study
  Country: US (occurrence: US)
  Receive Date: 20180308
  Receipt Date: 20180402
  Transmission Date: 20180711
  Serious: Yes (Hospitalization)
  Sender: FDA-Public Use
  Company Number: US-ROCHE-2043579

PATIENT
  Age: 57 Year
  Sex: Male
  Weight: 85 kg

DRUGS (156)
  1. ACETAMINOPHEN. [Concomitant]
     Active Substance: ACETAMINOPHEN
     Route: 065
     Dates: start: 20151001
  2. ACETAMINOPHEN. [Concomitant]
     Active Substance: ACETAMINOPHEN
     Route: 065
     Dates: start: 20160907
  3. ACETAMINOPHEN. [Concomitant]
     Active Substance: ACETAMINOPHEN
     Route: 065
     Dates: start: 20141112
  4. ACETAMINOPHEN. [Concomitant]
     Active Substance: ACETAMINOPHEN
     Route: 065
     Dates: start: 20151014
  5. ACETAMINOPHEN. [Concomitant]
     Active Substance: ACETAMINOPHEN
     Route: 065
     Dates: start: 20160426, end: 20160428
  6. DIPHENHYDRAMINE. [Concomitant]
     Active Substance: DIPHENHYDRAMINE
     Route: 065
     Dates: start: 20170316
  7. DIPHENHYDRAMINE. [Concomitant]
     Active Substance: DIPHENHYDRAMINE
     Route: 065
     Dates: start: 20130621
  8. DIPHENHYDRAMINE. [Concomitant]
     Active Substance: DIPHENHYDRAMINE
     Route: 065
     Dates: start: 20121227
  9. METHYLPREDNISOLONE. [Concomitant]
     Active Substance: METHYLPREDNISOLONE
     Route: 065
     Dates: start: 20131115
  10. METHYLPREDNISOLONE. [Concomitant]
     Active Substance: METHYLPREDNISOLONE
     Route: 065
     Dates: start: 20140527
  11. BACLOFEN. [Concomitant]
     Active Substance: BACLOFEN
     Route: 065
     Dates: start: 20140817, end: 20140817
  12. FUROSEMIDE. [Concomitant]
     Active Substance: FUROSEMIDE
     Indication: OEDEMA PERIPHERAL
     Route: 065
     Dates: start: 20170309, end: 20170315
  13. LASIX [Concomitant]
     Active Substance: FUROSEMIDE
     Dosage: WITH BREAKFAST
     Route: 042
  14. ZOLPIDEM TARTRATE. [Concomitant]
     Active Substance: ZOLPIDEM TARTRATE
     Indication: INSOMNIA
     Route: 065
     Dates: start: 20160425, end: 20160429
  15. ZOSYN [Concomitant]
     Active Substance: PIPERACILLIN SODIUM\TAZOBACTAM SODIUM
     Route: 065
     Dates: start: 20140816, end: 20140818
  16. TAMIFLU [Concomitant]
     Active Substance: OSELTAMIVIR PHOSPHATE
     Indication: INFLUENZA
     Dosage: INFLUENZA A
     Route: 065
     Dates: start: 20171218, end: 20171222
  17. HYDROCORTISONE. [Concomitant]
     Active Substance: HYDROCORTISONE
     Route: 061
  18. FLOMAX [Concomitant]
     Active Substance: TAMSULOSIN HYDROCHLORIDE
     Route: 048
  19. XEROFORM [Concomitant]
     Indication: CELLULITIS
     Dosage: DOSE:2 , UNIT: OTHER
     Route: 065
     Dates: start: 20161208, end: 20180104
  20. OCRELIZUMAB. [Suspect]
     Active Substance: OCRELIZUMAB
     Indication: PRIMARY PROGRESSIVE MULTIPLE SCLEROSIS
     Dosage: PATIENT RECEIVED SUBSEQUENT DOSES ON 10/JAN/2013, 21/JUN/2013, 09/JUL/2013, 25/NOV/2013, 10/DEC/2013
     Route: 042
     Dates: start: 20121227, end: 20160320
  21. ACETAMINOPHEN. [Concomitant]
     Active Substance: ACETAMINOPHEN
     Route: 065
     Dates: start: 20131210
  22. ACETAMINOPHEN. [Concomitant]
     Active Substance: ACETAMINOPHEN
     Route: 065
     Dates: start: 20150427
  23. ACETAMINOPHEN. [Concomitant]
     Active Substance: ACETAMINOPHEN
     Route: 065
     Dates: start: 20160927
  24. DIPHENHYDRAMINE. [Concomitant]
     Active Substance: DIPHENHYDRAMINE
     Route: 065
     Dates: start: 20131125
  25. DIPHENHYDRAMINE. [Concomitant]
     Active Substance: DIPHENHYDRAMINE
     Route: 065
     Dates: start: 20151014
  26. DIPHENHYDRAMINE. [Concomitant]
     Active Substance: DIPHENHYDRAMINE
     Route: 065
     Dates: start: 20160927
  27. DIPHENHYDRAMINE. [Concomitant]
     Active Substance: DIPHENHYDRAMINE
     Route: 065
     Dates: start: 20141029
  28. METHYLPREDNISOLONE. [Concomitant]
     Active Substance: METHYLPREDNISOLONE
     Route: 065
     Dates: start: 20130709
  29. METHYLPREDNISOLONE. [Concomitant]
     Active Substance: METHYLPREDNISOLONE
     Route: 065
     Dates: start: 20150415
  30. METHYLPREDNISOLONE. [Concomitant]
     Active Substance: METHYLPREDNISOLONE
     Route: 065
     Dates: start: 20150427
  31. METHYLPREDNISOLONE. [Concomitant]
     Active Substance: METHYLPREDNISOLONE
     Route: 065
     Dates: start: 20160927
  32. BACLOFEN. [Concomitant]
     Active Substance: BACLOFEN
     Indication: MUSCLE SPASTICITY
     Route: 065
     Dates: start: 20060601, end: 20130125
  33. BACLOFEN. [Concomitant]
     Active Substance: BACLOFEN
     Route: 065
     Dates: start: 20140818, end: 20150114
  34. BACLOFEN. [Concomitant]
     Active Substance: BACLOFEN
     Route: 065
     Dates: start: 20150115
  35. CIPROFLOXACIN. [Concomitant]
     Active Substance: CIPROFLOXACIN
     Route: 065
     Dates: start: 20140819, end: 20140901
  36. FAMOTIDINE. [Concomitant]
     Active Substance: FAMOTIDINE
     Route: 065
     Dates: start: 20160420, end: 20170519
  37. XARELTO [Concomitant]
     Active Substance: RIVAROXABAN
     Route: 065
     Dates: start: 20171124, end: 20171222
  38. VITAMIN C [Concomitant]
     Active Substance: ASCORBIC ACID
     Route: 065
     Dates: start: 20140817
  39. VANCOMYCIN [Concomitant]
     Active Substance: VANCOMYCIN
     Indication: CELLULITIS
     Route: 065
     Dates: start: 20140816, end: 20140817
  40. VANCOMYCIN [Concomitant]
     Active Substance: VANCOMYCIN
     Route: 042
  41. VANCOMYCIN [Concomitant]
     Active Substance: VANCOMYCIN
     Route: 065
     Dates: start: 20171202, end: 20171208
  42. SODIUM CHLORIDE. [Concomitant]
     Active Substance: SODIUM CHLORIDE
     Dosage: PATIENT RECEIVED ON 26/OCT/2016, 25/APR/2016, 20/APR/2017, 16/AUG/2014
     Route: 065
     Dates: start: 20161027, end: 20161027
  43. POTASSIUM CHLORIDE. [Concomitant]
     Active Substance: POTASSIUM CHLORIDE
  44. KEFLEX [Concomitant]
     Active Substance: CEPHALEXIN
     Indication: CELLULITIS
     Route: 065
     Dates: start: 20171130, end: 20171202
  45. OXYGEN. [Concomitant]
     Active Substance: OXYGEN
     Indication: RESPIRATORY FAILURE
     Dosage: 3 OTHER, LITERS
     Route: 065
     Dates: start: 20171218, end: 20171221
  46. TRIMETHOPRIM. [Concomitant]
     Active Substance: TRIMETHOPRIM
     Indication: CELLULITIS
     Route: 065
     Dates: start: 20171106, end: 20171111
  47. MICONAZOL [Concomitant]
     Active Substance: MICONAZOLE NITRATE
     Indication: GROIN INFECTION
  48. ACETAMINOPHEN. [Concomitant]
     Active Substance: ACETAMINOPHEN
     Route: 065
     Dates: start: 20150415
  49. ACETAMINOPHEN. [Concomitant]
     Active Substance: ACETAMINOPHEN
     Route: 065
     Dates: start: 20151023
  50. DIPHENHYDRAMINE. [Concomitant]
     Active Substance: DIPHENHYDRAMINE
     Route: 065
     Dates: start: 20130709
  51. DIPHENHYDRAMINE. [Concomitant]
     Active Substance: DIPHENHYDRAMINE
     Route: 065
     Dates: start: 20130601
  52. DIPHENHYDRAMINE. [Concomitant]
     Active Substance: DIPHENHYDRAMINE
     Route: 065
     Dates: start: 20141112
  53. DIPHENHYDRAMINE. [Concomitant]
     Active Substance: DIPHENHYDRAMINE
     Route: 065
     Dates: start: 20140513
  54. ENOXAPARIN [Concomitant]
     Active Substance: ENOXAPARIN
     Route: 065
     Dates: start: 20130130, end: 20130212
  55. FAMOTIDINE. [Concomitant]
     Active Substance: FAMOTIDINE
     Route: 065
     Dates: start: 20160425, end: 20160428
  56. IBUPROFEN. [Concomitant]
     Active Substance: IBUPROFEN
     Route: 065
     Dates: start: 20130129, end: 20130212
  57. TESTIM [Concomitant]
     Active Substance: TESTOSTERONE
     Route: 065
     Dates: start: 20140427, end: 20140812
  58. SOLU-CORTEF [Concomitant]
     Active Substance: HYDROCORTISONE SODIUM SUCCINATE
     Route: 065
     Dates: start: 20140816, end: 20140816
  59. DORYX (UNITED STATES) [Concomitant]
     Dosage: 20 TABLETS
     Route: 048
     Dates: start: 20171208, end: 20171218
  60. DIPHENHYDRAMINE. [Concomitant]
     Active Substance: DIPHENHYDRAMINE
     Route: 065
     Dates: start: 20131210
  61. METHYLPREDNISOLONE. [Concomitant]
     Active Substance: METHYLPREDNISOLONE
     Route: 065
     Dates: start: 20151001
  62. METHYLPREDNISOLONE. [Concomitant]
     Active Substance: METHYLPREDNISOLONE
     Route: 065
     Dates: start: 20141112
  63. METHYLPREDNISOLONE. [Concomitant]
     Active Substance: METHYLPREDNISOLONE
     Route: 065
     Dates: start: 20151023
  64. AQUAPHOR HEALING OITMENT [Concomitant]
     Indication: OEDEMA PERIPHERAL
     Dosage: 1 (OTHER APPLICATION)
     Route: 065
     Dates: start: 20170309
  65. BACLOFEN. [Concomitant]
     Active Substance: BACLOFEN
     Route: 065
     Dates: start: 20130126, end: 20140526
  66. BACLOFEN. [Concomitant]
     Active Substance: BACLOFEN
     Route: 065
     Dates: start: 20140527, end: 20140816
  67. CIPROFLOXACIN. [Concomitant]
     Active Substance: CIPROFLOXACIN
     Route: 065
     Dates: start: 20151002, end: 20151008
  68. XANAX [Concomitant]
     Active Substance: ALPRAZOLAM
     Route: 065
     Dates: start: 20131210, end: 20131210
  69. METAMUCIL [Concomitant]
     Active Substance: PLANTAGO SEED
     Indication: CONSTIPATION
  70. SWEEN CREAM [Concomitant]
     Indication: CELLULITIS
     Dosage: FOR WOUND CARE?1 OTHER, APPLICATION
     Route: 065
     Dates: start: 20171110, end: 20171202
  71. SWEEN CREAM [Concomitant]
     Indication: CELLULITIS
  72. KETOCONAZOL [Concomitant]
     Active Substance: KETOCONAZOLE
     Indication: SEBORRHOEIC DERMATITIS
     Dosage: 2% SHAMPOO ?1 APPLICATION
     Route: 065
     Dates: start: 20171202
  73. KLOR-CON M [Concomitant]
     Active Substance: POTASSIUM CHLORIDE
     Route: 065
  74. XARELTO [Concomitant]
     Active Substance: RIVAROXABAN
     Dosage: TOTAL 30 TABLETS
     Route: 048
  75. OCRELIZUMAB. [Suspect]
     Active Substance: OCRELIZUMAB
     Indication: PRIMARY PROGRESSIVE MULTIPLE SCLEROSIS
     Dosage: SUBSEQUENT DOSES RECEIVED ON 01/APR/2016, 07/SEP/2016, 27/SEP/2016, 16/FEB/2017, 16/MAR/2017.?TWO IV
     Route: 042
     Dates: start: 20160321
  76. OCRELIZUMAB. [Suspect]
     Active Substance: OCRELIZUMAB
     Route: 042
     Dates: start: 20160321
  77. ACETAMINOPHEN. [Concomitant]
     Active Substance: ACETAMINOPHEN
     Route: 065
     Dates: start: 20170316
  78. ACETAMINOPHEN. [Concomitant]
     Active Substance: ACETAMINOPHEN
     Route: 065
     Dates: start: 20160321
  79. ACETAMINOPHEN. [Concomitant]
     Active Substance: ACETAMINOPHEN
     Route: 065
     Dates: start: 20140527
  80. DIPHENHYDRAMINE. [Concomitant]
     Active Substance: DIPHENHYDRAMINE
     Route: 065
     Dates: start: 20151001
  81. DIPHENHYDRAMINE. [Concomitant]
     Active Substance: DIPHENHYDRAMINE
     Route: 065
     Dates: start: 20150427
  82. METHYLPREDNISOLONE. [Concomitant]
     Active Substance: METHYLPREDNISOLONE
     Route: 065
     Dates: start: 20160401
  83. METHYLPREDNISOLONE. [Concomitant]
     Active Substance: METHYLPREDNISOLONE
     Route: 065
     Dates: start: 20130610
  84. METHYLPREDNISOLONE. [Concomitant]
     Active Substance: METHYLPREDNISOLONE
     Route: 065
     Dates: start: 20170216
  85. METHYLPREDNISOLONE. [Concomitant]
     Active Substance: METHYLPREDNISOLONE
     Route: 065
     Dates: start: 20170316
  86. METHYLPREDNISOLONE. [Concomitant]
     Active Substance: METHYLPREDNISOLONE
     Route: 065
     Dates: start: 20141029
  87. VITAMIN D3 [Concomitant]
     Active Substance: CHOLECALCIFEROL
     Route: 065
     Dates: start: 20170307
  88. VANCOMYCIN [Concomitant]
     Active Substance: VANCOMYCIN
     Route: 065
     Dates: start: 20171106, end: 20171106
  89. TORADOL [Concomitant]
     Active Substance: KETOROLAC TROMETHAMINE
     Indication: ARTHRALGIA
     Route: 065
     Dates: start: 20130123, end: 20130128
  90. SOMA [Concomitant]
     Active Substance: CARISOPRODOL
     Route: 065
     Dates: start: 20160623, end: 20161123
  91. NORMAL SALINE [Concomitant]
     Active Substance: SODIUM CHLORIDE
     Dosage: HYPOVOLEMIC HYPONATREMIA
     Route: 065
     Dates: start: 20171218, end: 20171218
  92. OXYGEN. [Concomitant]
     Active Substance: OXYGEN
     Indication: BRONCHITIS
  93. PEPCID (UNITED STATES) [Concomitant]
     Route: 042
  94. NIZORAL [Concomitant]
     Active Substance: KETOCONAZOLE
     Route: 061
  95. MICONAZOLE NITRATE. [Concomitant]
     Active Substance: MICONAZOLE NITRATE
     Indication: GROIN INFECTION
     Dosage: 2 APPLICATION
     Route: 065
     Dates: start: 20171202
  96. ACETAMINOPHEN. [Concomitant]
     Active Substance: ACETAMINOPHEN
     Route: 065
     Dates: start: 20170901
  97. ACETAMINOPHEN. [Concomitant]
     Active Substance: ACETAMINOPHEN
     Route: 065
     Dates: start: 20130621
  98. ACETAMINOPHEN. [Concomitant]
     Active Substance: ACETAMINOPHEN
     Route: 065
     Dates: start: 20141029
  99. ACETAMINOPHEN. [Concomitant]
     Active Substance: ACETAMINOPHEN
     Route: 065
     Dates: start: 20130121, end: 20130212
  100. DIPHENHYDRAMINE. [Concomitant]
     Active Substance: DIPHENHYDRAMINE
     Route: 065
     Dates: start: 20160401
  101. DIPHENHYDRAMINE. [Concomitant]
     Active Substance: DIPHENHYDRAMINE
     Route: 065
     Dates: start: 20160907
  102. DIPHENHYDRAMINE. [Concomitant]
     Active Substance: DIPHENHYDRAMINE
     Route: 065
     Dates: start: 20151023
  103. METHYLPREDNISOLONE. [Concomitant]
     Active Substance: METHYLPREDNISOLONE
     Route: 065
     Dates: start: 20131210
  104. METHYLPREDNISOLONE. [Concomitant]
     Active Substance: METHYLPREDNISOLONE
     Route: 065
     Dates: start: 20140513
  105. BACLOFEN. [Concomitant]
     Active Substance: BACLOFEN
     Route: 065
     Dates: start: 20150115
  106. FUROSEMIDE. [Concomitant]
     Active Substance: FUROSEMIDE
     Route: 065
     Dates: start: 20170316, end: 20170417
  107. LASIX [Concomitant]
     Active Substance: FUROSEMIDE
     Route: 065
  108. VALIUM [Concomitant]
     Active Substance: DIAZEPAM
     Indication: ANXIETY
     Dosage: RECEIVED ON 22/APR/2015 AND 28/OCT/2013
     Route: 065
     Dates: start: 20121212, end: 20121212
  109. UNASYN (AMPICILLIN SODIUM) [Concomitant]
     Route: 065
     Dates: start: 20130123, end: 20130124
  110. SOLU-CORTEF [Concomitant]
     Active Substance: HYDROCORTISONE SODIUM SUCCINATE
     Route: 065
     Dates: start: 20140817, end: 20140817
  111. GARLIC. [Concomitant]
     Active Substance: GARLIC
  112. METAMUCIL [Concomitant]
     Active Substance: PLANTAGO SEED
     Indication: DIARRHOEA
  113. BENADRYL [Concomitant]
     Active Substance: DIPHENHYDRAMINE HYDROCHLORIDE
     Indication: CELLULITIS
     Dosage: FOR ALLERGIC RESPONSE TO KEFLEX
     Route: 065
     Dates: start: 20171202, end: 20180101
  114. TAMSULOSIN [Concomitant]
     Active Substance: TAMSULOSIN
     Indication: BENIGN PROSTATIC HYPERPLASIA
  115. LIORESAL [Concomitant]
     Active Substance: BACLOFEN
     Route: 048
  116. ACETAMINOPHEN. [Concomitant]
     Active Substance: ACETAMINOPHEN
     Route: 065
     Dates: start: 20160401
  117. ACETAMINOPHEN. [Concomitant]
     Active Substance: ACETAMINOPHEN
     Route: 065
     Dates: start: 20130709
  118. ACETAMINOPHEN. [Concomitant]
     Active Substance: ACETAMINOPHEN
     Route: 065
     Dates: start: 20130610
  119. ACETAMINOPHEN. [Concomitant]
     Active Substance: ACETAMINOPHEN
     Route: 065
     Dates: start: 20121227
  120. DIPHENHYDRAMINE. [Concomitant]
     Active Substance: DIPHENHYDRAMINE
     Route: 065
     Dates: start: 20170905
  121. DIPHENHYDRAMINE. [Concomitant]
     Active Substance: DIPHENHYDRAMINE
     Route: 065
     Dates: start: 20170216
  122. METHYLPREDNISOLONE. [Concomitant]
     Active Substance: METHYLPREDNISOLONE
     Route: 065
     Dates: start: 20170905
  123. METHYLPREDNISOLONE. [Concomitant]
     Active Substance: METHYLPREDNISOLONE
     Route: 065
     Dates: start: 20131125
  124. CITALOPRAM [Concomitant]
     Active Substance: CITALOPRAM HYDROBROMIDE
     Indication: DEPRESSION
     Route: 065
     Dates: start: 20170417
  125. ENOXAPARIN [Concomitant]
     Active Substance: ENOXAPARIN
     Route: 065
     Dates: start: 20130126, end: 20130129
  126. IBUPROFEN. [Concomitant]
     Active Substance: IBUPROFEN
     Route: 065
     Dates: start: 20130125, end: 20130129
  127. XANAX [Concomitant]
     Active Substance: ALPRAZOLAM
     Indication: ANXIETY
     Route: 065
     Dates: start: 20140121
  128. VITAMIN C [Concomitant]
     Active Substance: ASCORBIC ACID
     Route: 065
     Dates: start: 20130101, end: 20140816
  129. OMEGA 3 [Concomitant]
     Active Substance: OMEGA-3 FATTY ACIDS
  130. BENADRYL [Concomitant]
     Active Substance: DIPHENHYDRAMINE HYDROCHLORIDE
     Indication: CELLULITIS
     Route: 065
     Dates: start: 20171123, end: 20171201
  131. AMBIEN [Concomitant]
     Active Substance: ZOLPIDEM TARTRATE
     Dosage: INDUCE SLEEP
     Route: 065
     Dates: start: 20171106, end: 20171221
  132. AMBIEN [Concomitant]
     Active Substance: ZOLPIDEM TARTRATE
     Route: 065
  133. KEFLEX [Concomitant]
     Active Substance: CEPHALEXIN
     Indication: CELLULITIS
     Route: 065
     Dates: start: 20171130, end: 20171202
  134. LEVAQUIN [Concomitant]
     Active Substance: LEVOFLOXACIN
     Indication: CELLULITIS
     Route: 065
     Dates: start: 20171111
  135. LEVOFLOXACIN. [Concomitant]
     Active Substance: LEVOFLOXACIN
     Indication: CELLULITIS
     Route: 065
     Dates: start: 20171111, end: 20171120
  136. SULFAMETHOXAZOLE [Concomitant]
     Active Substance: SULFAMETHOXAZOLE
     Indication: CELLULITIS
     Route: 065
     Dates: start: 20171106, end: 20171111
  137. CELEXA [Concomitant]
     Active Substance: CITALOPRAM HYDROBROMIDE
     Route: 048
  138. SULFAMYLON [Concomitant]
     Active Substance: MAFENIDE ACETATE
     Indication: CELLULITIS
     Dosage: 85MG/G
     Route: 061
     Dates: start: 20170307, end: 20170315
  139. DESENEX POWDER [Concomitant]
     Route: 065
  140. LIORESAL [Concomitant]
     Active Substance: BACLOFEN
     Route: 065
  141. ACETAMINOPHEN. [Concomitant]
     Active Substance: ACETAMINOPHEN
     Route: 065
     Dates: start: 20140513
  142. ACETAMINOPHEN. [Concomitant]
     Active Substance: ACETAMINOPHEN
     Route: 065
     Dates: start: 20170216
  143. ACETAMINOPHEN. [Concomitant]
     Active Substance: ACETAMINOPHEN
     Route: 065
     Dates: start: 20140816, end: 20140816
  144. DIPHENHYDRAMINE. [Concomitant]
     Active Substance: DIPHENHYDRAMINE
     Route: 065
     Dates: start: 20150415
  145. DIPHENHYDRAMINE. [Concomitant]
     Active Substance: DIPHENHYDRAMINE
     Route: 065
     Dates: start: 20160321
  146. DIPHENHYDRAMINE. [Concomitant]
     Active Substance: DIPHENHYDRAMINE
     Route: 065
     Dates: start: 20140527
  147. METHYLPREDNISOLONE. [Concomitant]
     Active Substance: METHYLPREDNISOLONE
     Route: 065
     Dates: start: 20160907
  148. METHYLPREDNISOLONE. [Concomitant]
     Active Substance: METHYLPREDNISOLONE
     Route: 065
     Dates: start: 20130621
  149. ADVIL [Concomitant]
     Active Substance: IBUPROFEN
     Indication: UPPER RESPIRATORY TRACT INFECTION
     Route: 065
     Dates: start: 20150731, end: 20150810
  150. LASIX [Concomitant]
     Active Substance: FUROSEMIDE
     Indication: OEDEMA PERIPHERAL
     Route: 065
     Dates: start: 20170911
  151. XARELTO [Concomitant]
     Active Substance: RIVAROXABAN
     Indication: DEEP VEIN THROMBOSIS
     Route: 065
     Dates: start: 20171123
  152. VITAMIN D3 [Concomitant]
     Active Substance: CHOLECALCIFEROL
     Route: 065
     Dates: start: 19980101, end: 20140816
  153. VANCOMYCIN [Concomitant]
     Active Substance: VANCOMYCIN
     Indication: CELLULITIS
     Route: 065
     Dates: start: 20170420, end: 20170507
  154. TYLENOL [Concomitant]
     Active Substance: ACETAMINOPHEN
     Indication: MYALGIA
     Route: 065
     Dates: start: 20161103, end: 20161116
  155. TYLENOL [Concomitant]
     Active Substance: ACETAMINOPHEN
     Route: 065
  156. IPRATROPIUM [Concomitant]
     Active Substance: IPRATROPIUM
     Indication: RESPIRATORY FAILURE
     Route: 065
     Dates: start: 20171218

REACTIONS (2)
  - Cellulitis [Recovered/Resolved]
  - Sepsis [Recovered/Resolved]

NARRATIVE: CASE EVENT DATE: 20171202
